FAERS Safety Report 4745211-0 (Version None)
Quarter: 2005Q3

REPORT INFORMATION
  Report Type: 
  Country: None (occurrence: None)
  Receive Date: 20050815
  Receipt Date: 20050805
  Transmission Date: 20060218
  Serious: Yes (Hospitalization)
  Sender: FDA-Public Use
  Company Number: US-JNJFOC-20050802271

PATIENT
  Sex: Male
  Weight: 93 kg

DRUGS (10)
  1. ULTRAM [Suspect]
     Dosage: 1-2 TABLETS EVERY 4-6 HOURS
     Route: 048
     Dates: start: 20050201
  2. ZOCOR [Suspect]
     Indication: DRUG USE FOR UNKNOWN INDICATION
  3. GLIPIZIDE [Concomitant]
  4. VERAPAMIL [Concomitant]
  5. ALTACE [Concomitant]
  6. DITROPAN [Concomitant]
  7. NEXIUM [Concomitant]
  8. TERAZOSIN [Concomitant]
  9. ASPIRIN [Concomitant]
  10. AMITRIPTYLINE [Concomitant]

REACTIONS (1)
  - MUSCLE NECROSIS [None]
